FAERS Safety Report 4372620-4 (Version None)
Quarter: 2004Q2

REPORT INFORMATION
  Report Type: 
  Country: None (occurrence: None)
  Receive Date: 20040526
  Receipt Date: 20040514
  Transmission Date: 20050107
  Serious: Yes (Hospitalization)
  Sender: FDA-Public Use
  Company Number: 04P-056-0261084-00

PATIENT
  Age: 46 Year
  Sex: Female

DRUGS (6)
  1. DEPAKENE [Suspect]
     Indication: CONVULSION
     Dosage: 500 MG, 2 IN 1 D, PER ORAL
     Route: 048
     Dates: start: 20030101, end: 20031205
  2. INTERFERON BETA [Suspect]
     Indication: MULTIPLE SCLEROSIS
     Dosage: 30 MCG, 1 IN 1 WK, INTRAMUSCULAR
     Route: 030
     Dates: start: 19980101, end: 20030501
  3. TIANEPTINE [Concomitant]
  4. ALPRAZOLAM [Concomitant]
  5. POTASSIUM CHLORIDE [Concomitant]
  6. METHYLPREDNISOLONE [Concomitant]

REACTIONS (9)
  - APHASIA [None]
  - CONVULSION [None]
  - DISORIENTATION [None]
  - GLIOBLASTOMA [None]
  - HEMIANOPIA HOMONYMOUS [None]
  - HEMIPARESIS [None]
  - MEMORY IMPAIRMENT [None]
  - SPEECH DISORDER [None]
  - THROMBOCYTOPENIA [None]
